FAERS Safety Report 13904258 (Version 4)
Quarter: 2017Q4

REPORT INFORMATION
  Report Type: Report from Study
  Country: US (occurrence: US)
  Receive Date: 20170825
  Receipt Date: 20171018
  Transmission Date: 20180320
  Serious: No
  Sender: FDA-Public Use
  Company Number: US-AMGEN-USASL2017127176

PATIENT
  Age: 55 Year
  Sex: Female

DRUGS (1)
  1. ENBREL [Suspect]
     Active Substance: ETANERCEPT
     Indication: PSORIASIS
     Dosage: 50 MG, QWK
     Route: 058

REACTIONS (7)
  - Nausea [Unknown]
  - Pain [Unknown]
  - Injection site reaction [Unknown]
  - Injection site erythema [Unknown]
  - Drug ineffective [Unknown]
  - Headache [Unknown]
  - Muscle strain [Unknown]

NARRATIVE: CASE EVENT DATE: 201708
